FAERS Safety Report 9288048 (Version 1)
Quarter: 2013Q2

REPORT INFORMATION
  Report Type: Spontaneous
  Country: US (occurrence: None)
  Receive Date: 20130513
  Receipt Date: 20130513
  Transmission Date: 20140414
  Serious: Yes (Other)
  Sender: FDA-Public Use
  Company Number: None

PATIENT
  Age: 44 Year
  Sex: Female
  Weight: 70.31 kg

DRUGS (1)
  1. ZYRTEC [Suspect]
     Indication: SEASONAL ALLERGY
     Dosage: LIQUIGEL
     Route: 048
     Dates: start: 20130201, end: 20130430

REACTIONS (2)
  - Pruritus [None]
  - Drug withdrawal syndrome [None]
